FAERS Safety Report 16334297 (Version 1)
Quarter: 2019Q2

REPORT INFORMATION
  Report Type: Spontaneous
  Country: US (occurrence: US)
  Receive Date: 20190520
  Receipt Date: 20190520
  Transmission Date: 20190711
  Serious: No
  Sender: FDA-Public Use
  Company Number: US-ARRAY-2019-05383

PATIENT

DRUGS (2)
  1. BRAFTOVI [Suspect]
     Active Substance: ENCORAFENIB
     Indication: METASTASIS
     Dosage: 420 MG, QD
     Route: 048
     Dates: start: 20181012
  2. MEKTOVI [Suspect]
     Active Substance: BINIMETINIB
     Indication: METASTASIS
     Dosage: 45 MG, BID
     Route: 048
     Dates: start: 20181012

REACTIONS (2)
  - Adverse event [Unknown]
  - Off label use [Recovered/Resolved]

NARRATIVE: CASE EVENT DATE: 20181012
